FAERS Safety Report 19462357 (Version 2)
Quarter: 2021Q2

REPORT INFORMATION
  Report Type: Spontaneous
  Country: IN (occurrence: IN)
  Receive Date: 20210625
  Receipt Date: 20210630
  Transmission Date: 20210717
  Serious: Yes (Other)
  Sender: FDA-Public Use
  Company Number: IN-009507513-2106IND005016

PATIENT
  Sex: Male

DRUGS (2)
  1. JANUMET [Suspect]
     Active Substance: METFORMIN HYDROCHLORIDE\SITAGLIPTIN PHOSPHATE
     Indication: DIABETES MELLITUS
     Dosage: STRENGTH: 50/500 MG
     Route: 048
     Dates: start: 202006
  2. JANUMET [Suspect]
     Active Substance: METFORMIN HYDROCHLORIDE\SITAGLIPTIN PHOSPHATE
     Dosage: STRENGTH: 50/500 MG
     Route: 048

REACTIONS (6)
  - Headache [Unknown]
  - Blood glucose increased [Recovering/Resolving]
  - Emotional distress [Unknown]
  - Drug ineffective [Recovered/Resolved]
  - Product quality issue [Unknown]
  - Insomnia [Unknown]
